FAERS Safety Report 13737633 (Version 1)
Quarter: 2017Q3

REPORT INFORMATION
  Report Type: Spontaneous
  Country: US (occurrence: US)
  Receive Date: 20170710
  Receipt Date: 20170710
  Transmission Date: 20171127
  Serious: Yes (Hospitalization, Other)
  Sender: FDA-Public Use
  Company Number: US-SAOL THERAPEUTICS-2016SAO00463

PATIENT
  Age: 53 Year
  Sex: Female

DRUGS (6)
  1. LIORESAL [Suspect]
     Active Substance: BACLOFEN
     Dosage: 210.1 ?G, \DAY
  2. DILAUDID [Suspect]
     Active Substance: HYDROMORPHONE HYDROCHLORIDE
     Dosage: 7.498 MG/DAY
  3. LIORESAL [Suspect]
     Active Substance: BACLOFEN
     Indication: PAIN
     Dosage: 374.9 ?G/DAY
     Route: 037
  4. LIORESAL [Suspect]
     Active Substance: BACLOFEN
     Indication: BACK PAIN
     Dosage: 155.2 ?G, \DAY
  5. DILAUDID [Suspect]
     Active Substance: HYDROMORPHONE HYDROCHLORIDE
     Dosage: 3.103 MG, \DAY
  6. DILAUDID [Suspect]
     Active Substance: HYDROMORPHONE HYDROCHLORIDE
     Dosage: 4.203 MG, \DAY

REACTIONS (14)
  - Hypotension [Unknown]
  - Off label use [Unknown]
  - Paraesthesia [Recovering/Resolving]
  - Weight increased [Not Recovered/Not Resolved]
  - Diarrhoea [Unknown]
  - Drug withdrawal syndrome [Recovered/Resolved]
  - Unevaluable event [Unknown]
  - Complication associated with device [Recovered/Resolved]
  - Gait disturbance [Not Recovered/Not Resolved]
  - Dehydration [Unknown]
  - Pain [Recovering/Resolving]
  - Implant site extravasation [Not Recovered/Not Resolved]
  - Migraine [Not Recovered/Not Resolved]
  - Peripheral swelling [Recovered/Resolved]

NARRATIVE: CASE EVENT DATE: 201604
